FAERS Safety Report 20404579 (Version 4)
Quarter: 2024Q4

REPORT INFORMATION
  Report Type: Spontaneous
  Country: US (occurrence: US)
  Receive Date: 20220131
  Receipt Date: 20241114
  Transmission Date: 20250114
  Serious: Yes (Other)
  Sender: ROCHE
  Company Number: US-ROCHE-3007555

PATIENT
  Age: 51 Year
  Sex: Female

DRUGS (1)
  1. ALECENSA [Suspect]
     Active Substance: ALECTINIB HYDROCHLORIDE
     Indication: Lung neoplasm malignant
     Route: 048
     Dates: start: 20211224

REACTIONS (7)
  - Fatigue [Unknown]
  - Heart rate decreased [Unknown]
  - Muscular weakness [Unknown]
  - Weight increased [Unknown]
  - Constipation [Unknown]
  - Sensitive skin [Unknown]
  - Peripheral swelling [Unknown]
